FAERS Safety Report 9712902 (Version 1)
Quarter: 2013Q4

REPORT INFORMATION
  Report Type: Report from Study
  Country: DE (occurrence: DE)
  Receive Date: 20131126
  Receipt Date: 20131126
  Transmission Date: 20140711
  Serious: Yes (Other)
  Sender: FDA-Public Use
  Company Number: DE-ROCHE-1304999

PATIENT
  Age: 41 Year
  Sex: Male

DRUGS (2)
  1. ERIVEDGE [Suspect]
     Indication: BASAL CELL CARCINOMA
     Dosage: THERAPY WAS INTERRUPTED ON 22/APR/2013 DUE TO ABSCESS ON THE BACK (AER1217866).
     Route: 065
     Dates: end: 20130422
  2. ERIVEDGE [Suspect]
     Dosage: THERAPY WAS RESTARTED ON 29/APR/2013. VISMODEGIB WAS LATER DISCONTINUED.
     Route: 065
     Dates: start: 20130429

REACTIONS (5)
  - Ageusia [Unknown]
  - Alopecia [Unknown]
  - Muscle spasms [Unknown]
  - Visual impairment [Unknown]
  - Aphasia [Unknown]
